FAERS Safety Report 16372088 (Version 2)
Quarter: 2019Q2

REPORT INFORMATION
  Report Type: Report from Study
  Country: US (occurrence: US)
  Receive Date: 20190530
  Receipt Date: 20190621
  Transmission Date: 20190711
  Serious: Yes (Hospitalization, Other)
  Sender: FDA-Public Use
  Company Number: US-JNJFOC-20190221139

PATIENT
  Age: 86 Year
  Sex: Female
  Weight: 55.78 kg

DRUGS (11)
  1. COENZYME Q10 [Concomitant]
     Active Substance: UBIDECARENONE
  2. ALLOPURINOL. [Concomitant]
     Active Substance: ALLOPURINOL
  3. SYMBICORT [Concomitant]
     Active Substance: BUDESONIDE\FORMOTEROL FUMARATE DIHYDRATE
     Dosage: 80-4.5 MCG/ACT
  4. IMBRUVICA [Suspect]
     Active Substance: IBRUTINIB
     Indication: CHRONIC LYMPHOCYTIC LEUKAEMIA
     Route: 048
     Dates: start: 20190108, end: 20190305
  5. CALCIUM CITRATE W/ERGOCALCIFEROL [Concomitant]
  6. IMBRUVICA [Suspect]
     Active Substance: IBRUTINIB
     Indication: LYMPHOCYTIC LEUKAEMIA
     Route: 048
     Dates: start: 20190107
  7. SALBUTAMOL [Concomitant]
     Active Substance: ALBUTEROL
     Dosage: 108 (90 BASE) MCG/ACT
  8. FISH OIL W/TOCOPHEROL [Concomitant]
     Active Substance: FISH OIL\TOCOPHEROL
  9. IMBRUVICA [Suspect]
     Active Substance: IBRUTINIB
     Route: 048
     Dates: start: 20190109
  10. MULTIVITAMINS [Concomitant]
     Active Substance: VITAMINS
  11. CITRACAL [Concomitant]
     Active Substance: CALCIUM CITRATE

REACTIONS (7)
  - Atrial flutter [Recovering/Resolving]
  - Atrial fibrillation [Recovering/Resolving]
  - Interstitial lung disease [Not Recovered/Not Resolved]
  - Acute myocardial infarction [Recovering/Resolving]
  - Diarrhoea haemorrhagic [Recovering/Resolving]
  - White blood cell count increased [Unknown]
  - Emphysema [Not Recovered/Not Resolved]

NARRATIVE: CASE EVENT DATE: 20190304
